FAERS Safety Report 7953155-6 (Version None)
Quarter: 2011Q4

REPORT INFORMATION
  Report Type: 
  Country: None (occurrence: None)
  Receive Date: 20111201
  Receipt Date: 20111122
  Transmission Date: 20120403
  Serious: Yes (Hospitalization)
  Sender: FDA-Public Use
  Company Number: US-ASTRAZENECA-2011SE64146

PATIENT
  Age: 47 Year
  Sex: Female

DRUGS (1)
  1. CRESTOR [Suspect]
     Indication: BLOOD CHOLESTEROL
     Route: 048

REACTIONS (3)
  - STRESS [None]
  - MALAISE [None]
  - GASTROOESOPHAGEAL REFLUX DISEASE [None]
